FAERS Safety Report 4663695-3 (Version None)
Quarter: 2005Q2

REPORT INFORMATION
  Report Type: 
  Country: None (occurrence: None)
  Receive Date: 20050516
  Receipt Date: 20050505
  Transmission Date: 20051028
  Serious: Yes (Hospitalization)
  Sender: FDA-Public Use
  Company Number: TPA2005A00525

PATIENT
  Age: 79 Year
  Sex: Male
  Weight: 83.0083 kg

DRUGS (8)
  1. ACTOS [Suspect]
     Indication: DIABETES MELLITUS NON-INSULIN-DEPENDENT
     Dosage: 22.5 MG, 1 IN 1 D, PER ORAL
     Route: 048
     Dates: start: 20010505
  2. PLAVIX [Concomitant]
  3. LIPITOR [Concomitant]
  4. AMARYL [Concomitant]
  5. LISINOPRIL [Concomitant]
  6. NIFEDIPINE [Concomitant]
  7. LEVOTHYROXINE SODIUM [Concomitant]
  8. METOLAZONE [Concomitant]

REACTIONS (4)
  - ANAEMIA [None]
  - LOSS OF CONSCIOUSNESS [None]
  - NASAL SINUS DRAINAGE [None]
  - OEDEMA [None]
